FAERS Safety Report 18068663 (Version 1)
Quarter: 2020Q3

REPORT INFORMATION
  Report Type: Spontaneous
  Country: US (occurrence: US)
  Receive Date: 20200724
  Receipt Date: 20200724
  Transmission Date: 20201103
  Serious: Yes (Hospitalization, Other)
  Sender: FDA-Public Use
  Company Number: US-VIRTUS PHARMACEUTICALS, LLC-2020VTS00046

PATIENT
  Age: 75 Year
  Sex: Female

DRUGS (6)
  1. AMLODIPINE [Concomitant]
     Active Substance: AMLODIPINE BESYLATE
     Dosage: 10 MG, 1X/DAY
  2. LISINOPRIL. [Concomitant]
     Active Substance: LISINOPRIL
     Dosage: 40 MG, 1X/DAY
  3. FLUCONAZOLE. [Concomitant]
     Active Substance: FLUCONAZOLE
  4. CARVEDILOL. [Concomitant]
     Active Substance: CARVEDILOL
     Dosage: 12.5 MG, 2X/DAY
  5. DAPSONE. [Suspect]
     Active Substance: DAPSONE
     Indication: STEM CELL TRANSPLANT
     Dosage: 100 MG, 1X/DAY
     Route: 048
     Dates: start: 20200608, end: 202006
  6. KLONOPIN [Concomitant]
     Active Substance: CLONAZEPAM
     Dosage: UNK, AS NEEDED

REACTIONS (6)
  - Oxygen saturation decreased [Recovered/Resolved]
  - Toxicity to various agents [Recovered/Resolved]
  - Blood methaemoglobin present [Unknown]
  - Off label use [Recovered/Resolved]
  - Product substitution issue [Recovered/Resolved]
  - General physical health deterioration [Recovered/Resolved]

NARRATIVE: CASE EVENT DATE: 202006
